FAERS Safety Report 7212288-2 (Version None)
Quarter: 2011Q1

REPORT INFORMATION
  Report Type: 
  Country: None (occurrence: None)
  Receive Date: 20110106
  Receipt Date: 20101224
  Transmission Date: 20110831
  Serious: Yes (Other)
  Sender: FDA-Public Use
  Company Number: PHHY2010JP85811

PATIENT
  Sex: Male

DRUGS (5)
  1. ETOPOSIDE [Concomitant]
  2. METHOTREXATE [Concomitant]
  3. CYCLOPHOSPHAMIDE [Concomitant]
  4. MITOXANTRONE HYDROCHLORIDE [Concomitant]
  5. CYCLOSPORINE [Suspect]
     Indication: UNRELATED DONOR BONE MARROW TRANSPLANTATION THERAPY
     Route: 048

REACTIONS (4)
  - THYROID CANCER [None]
  - THYROID MASS [None]
  - THYROIDECTOMY [None]
  - TONSILLAR HYPERTROPHY [None]
